FAERS Safety Report 5600338-6 (Version None)
Quarter: 2008Q1

REPORT INFORMATION
  Report Type: 
  Country: None (occurrence: None)
  Receive Date: 20080123
  Receipt Date: 20080118
  Transmission Date: 20080703
  Serious: Yes (Other)
  Sender: FDA-Public Use
  Company Number: FR-JNJFOC-20080104455

PATIENT
  Age: 12 Year
  Sex: Female

DRUGS (1)
  1. EPITOMAX [Suspect]
     Indication: MIGRAINE

REACTIONS (3)
  - BODY DYSMORPHIC DISORDER [None]
  - PARAESTHESIA [None]
  - RAYNAUD'S PHENOMENON [None]
